FAERS Safety Report 4353515-9 (Version None)
Quarter: 2004Q2

REPORT INFORMATION
  Report Type: 
  Country: None (occurrence: None)
  Receive Date: 20040505
  Receipt Date: 20040227
  Transmission Date: 20050107
  Serious: Yes (Other)
  Sender: FDA-Public Use
  Company Number: DE-ROCHE-360096

PATIENT
  Age: 18 Year
  Sex: Male
  Weight: 104 kg

DRUGS (2)
  1. ROACCUTAN [Suspect]
     Indication: ACNE
     Route: 048
     Dates: start: 20021215, end: 20030815
  2. ROACCUTAN [Suspect]
     Route: 048
     Dates: start: 20031015, end: 20040215

REACTIONS (4)
  - BLOOD CREATINE PHOSPHOKINASE INCREASED [None]
  - MYALGIA [None]
  - MYOSITIS [None]
  - SJOGREN'S SYNDROME [None]
